FAERS Safety Report 4622559-1 (Version None)
Quarter: 2005Q1

REPORT INFORMATION
  Report Type: 
  Country: None (occurrence: None)
  Receive Date: 20050317
  Receipt Date: 20040720
  Transmission Date: 20050727
  Serious: Yes (Hospitalization)
  Sender: FDA-Public Use
  Company Number: PHEH2004US07776

PATIENT
  Age: 48 Year
  Sex: Female

DRUGS (2)
  1. TRILEPTAL [Suspect]
     Indication: BIPOLAR DISORDER
     Dosage: 450 MG/AM 600 MG/HS, ORAL
     Route: 048
     Dates: start: 20040710
  2. LAMOTRIGINE [Concomitant]

REACTIONS (1)
  - HYPONATRAEMIA [None]
